FAERS Safety Report 7045219-9 (Version None)
Quarter: 2010Q4

REPORT INFORMATION
  Report Type: 
  Country: None (occurrence: None)
  Receive Date: 20101014
  Receipt Date: 20100714
  Transmission Date: 20110411
  Serious: No
  Sender: FDA-Public Use
  Company Number: US-ALLERGAN-1009227US

PATIENT
  Age: 54 Year
  Sex: Female

DRUGS (5)
  1. LATISSE [Suspect]
     Indication: GROWTH OF EYELASHES
     Dosage: 1 GTT, QHS
     Route: 061
     Dates: start: 20091201
  2. LATISSE [Suspect]
     Dosage: 1 GTT, QOD
     Route: 061
     Dates: start: 20100601, end: 20100712
  3. RESTASIS [Suspect]
     Indication: DRY EYE
     Dosage: UNK GTT
     Dates: start: 20100101, end: 20100101
  4. RESTASIS [Suspect]
  5. CELLUVISC [Concomitant]
     Dosage: UNK GTT
     Dates: start: 20100101

REACTIONS (7)
  - DRY EYE [None]
  - ERYTHEMA OF EYELID [None]
  - EYE IRRITATION [None]
  - EYELID OEDEMA [None]
  - HORDEOLUM [None]
  - INAPPROPRIATE SCHEDULE OF DRUG ADMINISTRATION [None]
  - MADAROSIS [None]
